FAERS Safety Report 21360698 (Version 1)
Quarter: 2022Q3

REPORT INFORMATION
  Report Type: Spontaneous
  Country: US (occurrence: US)
  Receive Date: 20220921
  Receipt Date: 20220921
  Transmission Date: 20221027
  Serious: No
  Sender: FDA-Public Use
  Company Number: US-ELI_LILLY_AND_COMPANY-US202208011882

PATIENT
  Age: 77 Year
  Sex: Female

DRUGS (3)
  1. TRULICITY [Suspect]
     Active Substance: DULAGLUTIDE
     Indication: Type 2 diabetes mellitus
     Dosage: 0.75 MG, UNKNOWN
     Route: 065
     Dates: start: 20220713
  2. LEVEMIR [Concomitant]
     Active Substance: INSULIN DETEMIR
     Indication: Type 2 diabetes mellitus
  3. METFORMIN [Concomitant]
     Active Substance: METFORMIN HYDROCHLORIDE
     Indication: Type 2 diabetes mellitus

REACTIONS (7)
  - Hypokinesia [Unknown]
  - Blood glucose increased [Unknown]
  - Hot flush [Unknown]
  - Headache [Unknown]
  - Injection site pain [Unknown]
  - Fatigue [Unknown]
  - Nausea [Unknown]

NARRATIVE: CASE EVENT DATE: 20220720
